FAERS Safety Report 5032092-3 (Version None)
Quarter: 2006Q2

REPORT INFORMATION
  Report Type: 
  Country: None (occurrence: None)
  Receive Date: 20060619
  Receipt Date: 20060602
  Transmission Date: 20061013
  Serious: Yes (Other)
  Sender: FDA-Public Use
  Company Number: US-2006-014293

PATIENT
  Age: 51 Year
  Sex: Female

DRUGS (7)
  1. BETASERON [Suspect]
     Indication: MULTIPLE SCLEROSIS
     Dosage: 8 MIU, EVERY 2 D, SUBCUTANEOUS
     Route: 058
     Dates: start: 20060201
  2. TOPROL-XL [Concomitant]
  3. ALTACE [Concomitant]
  4. LIPITOR [Concomitant]
  5. PERSANTINE [Concomitant]
  6. PLAVIX [Concomitant]
  7. PROVIDGIL (MODAFINIL) [Concomitant]

REACTIONS (5)
  - ERYTHEMA [None]
  - OEDEMA PERIPHERAL [None]
  - PAIN IN EXTREMITY [None]
  - PALLOR [None]
  - SENSATION OF HEAVINESS [None]
